FAERS Safety Report 6736292-3 (Version None)
Quarter: 2010Q2

REPORT INFORMATION
  Report Type: 
  Country: None (occurrence: None)
  Receive Date: 20100521
  Receipt Date: 20100512
  Transmission Date: 20101027
  Serious: Yes (Hospitalization, Other)
  Sender: FDA-Public Use
  Company Number: BE-JNJFOC-20100202055

PATIENT
  Sex: Female
  Weight: 67 kg

DRUGS (8)
  1. REMICADE [Suspect]
     Indication: CROHN'S DISEASE
     Route: 042
     Dates: start: 20050421, end: 20051017
  2. HUMIRA [Concomitant]
     Indication: CROHN'S DISEASE
  3. NOVOMIX [Concomitant]
  4. METFORMIN HCL [Concomitant]
  5. LEVOTHYROXINE SODIUM [Concomitant]
  6. SELOKEEN NOS [Concomitant]
  7. OMEPRAZOLE [Concomitant]
  8. CO-APROVEL [Concomitant]

REACTIONS (9)
  - ASTHENIA [None]
  - CROHN'S DISEASE [None]
  - DIABETES MELLITUS [None]
  - ILEAL STENOSIS [None]
  - LUNG ADENOCARCINOMA STAGE IV [None]
  - PYELONEPHRITIS [None]
  - ROTATOR CUFF SYNDROME [None]
  - TINNITUS [None]
  - TUBERCULIN TEST POSITIVE [None]
